FAERS Safety Report 9122114 (Version 1)
Quarter: 2013Q1

REPORT INFORMATION
  Report Type: Spontaneous
  Country: SE (occurrence: SE)
  Receive Date: 20130227
  Receipt Date: 20130227
  Transmission Date: 20140127
  Serious: Yes (Other)
  Sender: FDA-Public Use
  Company Number: SE-PFIZER INC-2013064906

PATIENT
  Age: 68 Year
  Sex: Female

DRUGS (3)
  1. LYRICA [Suspect]
     Indication: MUSCLE SPASMS
     Dosage: 50 MG, 1X/DAY
  2. LYRICA [Suspect]
     Dosage: 100 MG, 1X/DAY
  3. STILNOCT [Concomitant]
     Dosage: 10 MG, 1X/DAY

REACTIONS (4)
  - Thyroid function test abnormal [Not Recovered/Not Resolved]
  - Off label use [Unknown]
  - Fatigue [Recovered/Resolved]
  - Poor quality sleep [Recovered/Resolved]
